FAERS Safety Report 5317816-X (Version None)
Quarter: 2007Q2

REPORT INFORMATION
  Report Type: 
  Country: None (occurrence: None)
  Receive Date: 20070502
  Receipt Date: 20070502
  Transmission Date: 20071010
  Serious: Yes (Life-Threatening, Hospitalization)
  Sender: FDA-Public Use
  Company Number: None

PATIENT
  Age: 81 Year
  Sex: Male
  Weight: 60 kg

DRUGS (1)
  1. OMNIPAQUE 350 [Suspect]
     Indication: SCAN WITH CONTRAST
     Dosage: 150CC   ONE DOSE  IV
     Route: 042
     Dates: start: 20070323, end: 20070323

REACTIONS (3)
  - AGITATION [None]
  - DOCUMENTED HYPERSENSITIVITY TO ADMINISTERED DRUG [None]
  - DYSPNOEA [None]
